FAERS Safety Report 18715768 (Version 1)
Quarter: 2021Q1

REPORT INFORMATION
  Report Type: Spontaneous
  Country: US (occurrence: US)
  Receive Date: 20210107
  Receipt Date: 20210107
  Transmission Date: 20210419
  Serious: Yes (Disabling, Other)
  Sender: FDA-Public Use
  Company Number: None

PATIENT
  Age: 68 Year
  Sex: Female
  Weight: 66.23 kg

DRUGS (1)
  1. NATURE?THROID [Suspect]
     Active Substance: THYROID, PORCINE
     Indication: HYPOTHYROIDISM
     Route: 048
     Dates: start: 20200624, end: 20201208

REACTIONS (7)
  - Mental disorder [None]
  - Fatigue [None]
  - Distractibility [None]
  - Loss of personal independence in daily activities [None]
  - Cognitive disorder [None]
  - Vision blurred [None]
  - Depression [None]
